FAERS Safety Report 6347093-2 (Version None)
Quarter: 2009Q3

REPORT INFORMATION
  Report Type: 
  Country: None (occurrence: None)
  Receive Date: 20090910
  Receipt Date: 20090828
  Transmission Date: 20100115
  Serious: Yes (Hospitalization)
  Sender: FDA-Public Use
  Company Number: GB-PURDUE-USA-2009-0039988

PATIENT
  Age: 90 Year
  Sex: Female

DRUGS (4)
  1. TRAMADOL HCL [Suspect]
     Indication: ANALGESIA
     Dosage: 200 MG, DAILY
  2. BENDROFLUMETHIAZIDE [Suspect]
     Indication: HYPERTENSION
     Dosage: 2.5 MG, DAILY
  3. WARFARIN SODIUM [Suspect]
     Indication: ATRIAL FIBRILLATION
     Dosage: UNK MG, DAILY
  4. PARACETAMOL [Concomitant]
     Indication: ANALGESIA
     Dosage: 1 UNK, UNK

REACTIONS (10)
  - CONFUSIONAL STATE [None]
  - CONSTIPATION [None]
  - DELIRIUM [None]
  - DRUG INTERACTION [None]
  - FALL [None]
  - HAEMATOMA [None]
  - HAEMATOMA EVACUATION [None]
  - HYPONATRAEMIA [None]
  - MEMORY IMPAIRMENT [None]
  - OVERDOSE [None]
